FAERS Safety Report 5655733-6 (Version None)
Quarter: 2008Q1

REPORT INFORMATION
  Report Type: 
  Country: None (occurrence: None)
  Receive Date: 20080307
  Receipt Date: 20080229
  Transmission Date: 20080703
  Serious: Yes (Other)
  Sender: FDA-Public Use
  Company Number: US-PFIZER INC-2007038791

PATIENT
  Sex: Male
  Weight: 149.7 kg

DRUGS (9)
  1. LIPITOR [Suspect]
     Indication: DYSLIPIDAEMIA
  2. LIPITOR [Suspect]
     Indication: BLOOD CHOLESTEROL INCREASED
     Dates: start: 20070101, end: 20070701
  3. ZETIA [Concomitant]
  4. PLAVIX [Concomitant]
  5. METOPROLOL TARTRATE [Concomitant]
  6. ISOSORBIDE DINITRATE [Concomitant]
  7. ASPIRIN [Concomitant]
  8. PREDNISONE TAB [Concomitant]
  9. ALL OTHER THERAPEUTIC PRODUCTS [Concomitant]

REACTIONS (11)
  - ARTHRALGIA [None]
  - BURNING SENSATION [None]
  - CORONARY ARTERY OCCLUSION [None]
  - HYPOAESTHESIA [None]
  - INJURY [None]
  - JOB DISSATISFACTION [None]
  - MUSCLE ATROPHY [None]
  - MUSCLE STRAIN [None]
  - MYALGIA [None]
  - MYOCARDIAL INFARCTION [None]
  - SENSORY LOSS [None]
